FAERS Safety Report 21132850 (Version 1)
Quarter: 2022Q3

REPORT INFORMATION
  Report Type: Spontaneous
  Country: US (occurrence: US)
  Receive Date: 20220726
  Receipt Date: 20220726
  Transmission Date: 20221027
  Serious: No
  Sender: FDA-Public Use
  Company Number: US-PFIZER INC-202201000629

PATIENT
  Age: 69 Year
  Sex: Female
  Weight: 73.94 kg

DRUGS (3)
  1. PAXLOVID [Suspect]
     Active Substance: NIRMATRELVIR\RITONAVIR
     Indication: COVID-19 treatment
     Dosage: [PF-07321332 150 MG]/[RITONAVIR 100 MG]; 2X/DAY
     Route: 048
     Dates: start: 20220720
  2. TRAVOPROST [Concomitant]
     Active Substance: TRAVOPROST
     Indication: Glaucoma
     Dosage: UNK, 1X/DAY (ONE DROP EVERY NIGHT TO THE RIGHT EYE)
     Dates: start: 2017, end: 202207
  3. LATANOPROST [Concomitant]
     Active Substance: LATANOPROST
     Indication: Glaucoma
     Dosage: UNK, 1X/DAY (ONE DROP EVERY NIGHT TO THE LEFT EYE)
     Dates: start: 2017, end: 202207

REACTIONS (12)
  - Throat tightness [Unknown]
  - Dizziness [Unknown]
  - Nausea [Unknown]
  - Respiratory tract congestion [Unknown]
  - Productive cough [Unknown]
  - Diarrhoea [Unknown]
  - Vomiting [Unknown]
  - Retching [Unknown]
  - Presyncope [Unknown]
  - Balance disorder [Unknown]
  - Pulmonary pain [Unknown]
  - Illness [Unknown]

NARRATIVE: CASE EVENT DATE: 20220720
